FAERS Safety Report 7108743-6 (Version None)
Quarter: 2010Q4

REPORT INFORMATION
  Report Type: 
  Country: None (occurrence: None)
  Receive Date: 20101117
  Receipt Date: 20101108
  Transmission Date: 20110411
  Serious: No
  Sender: FDA-Public Use
  Company Number: US-ASTRAZENECA-2010SE52829

PATIENT
  Age: 90 Year
  Sex: Female

DRUGS (24)
  1. SEROQUEL [Suspect]
     Indication: DEMENTIA
     Dosage: 50 MG TWO TIMES A DAY
     Route: 048
     Dates: start: 20091001
  2. SEROQUEL [Suspect]
     Indication: HALLUCINATION
     Dosage: 50 MG TWO TIMES A DAY
     Route: 048
     Dates: start: 20091001
  3. SEROQUEL [Suspect]
     Route: 048
  4. SEROQUEL [Suspect]
     Route: 048
  5. SEROQUEL [Suspect]
     Dosage: 25 MG TWO TIMES A DAY
     Route: 048
     Dates: start: 20101001
  6. SEROQUEL [Suspect]
     Dosage: 25 MG TWO TIMES A DAY
     Route: 048
     Dates: start: 20101001
  7. AMANTADINE [Concomitant]
  8. FUROSEMIDE [Concomitant]
  9. POTASSIUM CHLORIDE [Concomitant]
  10. METOPROLOL TARTRATE [Concomitant]
  11. PLAVIX [Concomitant]
     Indication: CONDUCTION DISORDER
  12. ISOSORBIDE DINITRATE [Concomitant]
  13. PRAVASTATIN [Concomitant]
  14. VITAMIN B-12 [Concomitant]
  15. CALTRATE PLUS D [Concomitant]
  16. ARICEPT [Concomitant]
  17. LEVOXYL [Concomitant]
  18. AMANDA [Concomitant]
  19. STOOL SOFTNER [Concomitant]
  20. CENTRUM SILVER [Concomitant]
  21. PROVENTIL [Concomitant]
     Dosage: AS REQUIRED
  22. ADVAIR DISKUS 100/50 [Concomitant]
     Dosage: AS REQUIRED
  23. PROMETHAZINE [Concomitant]
     Indication: NAUSEA
     Dosage: AS REQUIRED
  24. MECLIZINE [Concomitant]
     Indication: DIZZINESS
     Dosage: AS REQUIRED

REACTIONS (8)
  - AGGRESSION [None]
  - ANGER [None]
  - DIZZINESS [None]
  - FEELING ABNORMAL [None]
  - HALLUCINATION [None]
  - NAUSEA [None]
  - RESTLESSNESS [None]
  - WHITE BLOOD CELL COUNT DECREASED [None]
